FAERS Safety Report 8161466-7 (Version None)
Quarter: 2012Q1

REPORT INFORMATION
  Report Type: 
  Country: None (occurrence: None)
  Receive Date: 20120224
  Receipt Date: 20110303
  Transmission Date: 20120608
  Serious: No
  Sender: FDA-Public Use
  Company Number: US-MYLANLABS-2011S1004542

PATIENT
  Age: 38 Year
  Sex: Male

DRUGS (2)
  1. ALPRAZOLAM [Suspect]
     Indication: IRRITABLE BOWEL SYNDROME
     Route: 048
     Dates: start: 20110201, end: 20110201
  2. ALPRAZOLAM [Suspect]
     Route: 048
     Dates: start: 20110201

REACTIONS (3)
  - ANXIETY [None]
  - MUSCLE SPASMS [None]
  - FEELING JITTERY [None]
